FAERS Safety Report 9204384 (Version 1)
Quarter: 2013Q1

REPORT INFORMATION
  Report Type: Spontaneous
  Country: US (occurrence: None)
  Receive Date: 20130329
  Receipt Date: 20130329
  Transmission Date: 20140127
  Serious: Yes (Death)
  Sender: FDA-Public Use
  Company Number: UTC-030587

PATIENT
  Age: 62 Year
  Sex: Male
  Weight: 99.1 kg

DRUGS (1)
  1. REMODULIN (2.5 MILLIGRAM/MILLILITERS, INJECTION FOR INFUSION) (TREPROSTINIL SODIUM) [Suspect]
     Indication: PULMONARY ARTERIAL HYPERTENSION
     Dosage: 17.28 UG/KG (0.012 UG/KG, 1 IN 1 MIN), INTRAVENOUS DRIP
     Dates: start: 20130112

REACTIONS (1)
  - Death [None]
